FAERS Safety Report 8244430-9 (Version None)
Quarter: 2012Q1

REPORT INFORMATION
  Report Type: 
  Country: None (occurrence: None)
  Receive Date: 20120329
  Receipt Date: 20120320
  Transmission Date: 20120608
  Serious: Yes (Hospitalization)
  Sender: FDA-Public Use
  Company Number: IL-SANOFI-AVENTIS-2012SA019515

PATIENT
  Age: 55 Year
  Sex: Male

DRUGS (2)
  1. JEVTANA KIT [Suspect]
     Indication: PROSTATE CANCER
     Route: 042
  2. JEVTANA KIT [Suspect]
     Route: 042

REACTIONS (3)
  - LUNG INFILTRATION [None]
  - PYREXIA [None]
  - DYSPNOEA [None]
